FAERS Safety Report 6071591-2 (Version None)
Quarter: 2009Q1

REPORT INFORMATION
  Report Type: 
  Country: None (occurrence: None)
  Receive Date: 20090210
  Receipt Date: 20090130
  Transmission Date: 20090719
  Serious: Yes (Hospitalization, Other)
  Sender: FDA-Public Use
  Company Number: CH-WYE-G03024209

PATIENT
  Age: 20 Year
  Sex: Female
  Weight: 44 kg

DRUGS (5)
  1. TEMESTA [Interacting]
     Indication: DEPRESSION
     Route: 048
     Dates: start: 20090110, end: 20090114
  2. SEROQUEL [Interacting]
     Indication: MAJOR DEPRESSION
     Route: 048
     Dates: start: 20090110, end: 20090114
  3. EFFEXOR [Suspect]
     Indication: MAJOR DEPRESSION
     Route: 048
     Dates: start: 20080711, end: 20090110
  4. EFFEXOR [Interacting]
     Route: 048
     Dates: start: 20090111, end: 20090101
  5. EFFEXOR [Interacting]
     Route: 048
     Dates: start: 20090101

REACTIONS (6)
  - ANTIDEPRESSANT DRUG LEVEL ABOVE THERAPEUTIC [None]
  - DRUG INTERACTION [None]
  - HYPOTENSION [None]
  - MALAISE [None]
  - PALPITATIONS [None]
  - SUPRAVENTRICULAR TACHYCARDIA [None]
